FAERS Safety Report 21685571 (Version 3)
Quarter: 2024Q2

REPORT INFORMATION
  Report Type: Spontaneous
  Country: AU (occurrence: AU)
  Receive Date: 20221206
  Receipt Date: 20240405
  Transmission Date: 20240716
  Serious: Yes (Death, Other)
  Sender: FDA-Public Use
  Company Number: AU-JNJFOC-20221163047

PATIENT
  Age: 82 Year

DRUGS (10)
  1. IMBRUVICA [Suspect]
     Active Substance: IBRUTINIB
     Indication: Chronic lymphocytic leukaemia
     Dosage: 6TH LINE TREATMENT
     Route: 048
     Dates: start: 201812
  2. CYCLOPHOSPHAMIDE [Suspect]
     Active Substance: CYCLOPHOSPHAMIDE
     Indication: Chronic lymphocytic leukaemia
     Dosage: 5 CYCLES; SECOND LINE
     Route: 065
     Dates: start: 201112, end: 201204
  3. CYCLOPHOSPHAMIDE [Suspect]
     Active Substance: CYCLOPHOSPHAMIDE
     Indication: Chronic lymphocytic leukaemia
     Dosage: SIXTH LINE
     Route: 065
  4. VENETOCLAX [Suspect]
     Active Substance: VENETOCLAX
     Indication: Chronic lymphocytic leukaemia
     Dosage: 6TH LINE TREATMENT
     Route: 048
     Dates: start: 201812
  5. RITUXIMAB [Suspect]
     Active Substance: RITUXIMAB
     Indication: Chronic lymphocytic leukaemia
     Dosage: FOURTH LINE TREATMENT ; RITUXIMAB + CONTINUOUS VENETOCLAX
     Route: 065
     Dates: start: 201404, end: 201608
  6. RITUXIMAB [Suspect]
     Active Substance: RITUXIMAB
     Indication: Chronic lymphocytic leukaemia
     Dosage: SECOND LINE; 5 CYCLES
     Route: 065
     Dates: start: 201112, end: 201204
  7. RITUXIMAB [Suspect]
     Active Substance: RITUXIMAB
     Indication: Chronic lymphocytic leukaemia
     Dosage: SIXTH LINE TREATMENT
     Route: 065
  8. VINCRISTINE [Suspect]
     Active Substance: VINCRISTINE
     Indication: Chronic lymphocytic leukaemia
     Dosage: SIXTH LINE TREATMENT
     Route: 065
  9. PREDNISOLONE [Suspect]
     Active Substance: PREDNISOLONE
     Indication: Chronic lymphocytic leukaemia
     Dosage: SIXTH LINE
     Route: 065
  10. DOXORUBICIN [Suspect]
     Active Substance: DOXORUBICIN
     Indication: Chronic lymphocytic leukaemia
     Dosage: SIXTH LINE
     Route: 065

REACTIONS (2)
  - Death [Fatal]
  - Richter^s syndrome [Unknown]

NARRATIVE: CASE EVENT DATE: 20191001
